FAERS Safety Report 21004029 (Version 3)
Quarter: 2022Q3

REPORT INFORMATION
  Report Type: Report from Study
  Country: BE (occurrence: BE)
  Receive Date: 20220624
  Receipt Date: 20220812
  Transmission Date: 20221026
  Serious: Yes (Hospitalization)
  Sender: FDA-Public Use
  Company Number: BE-GILEAD-2022-0583676

PATIENT
  Sex: Male
  Weight: 76 kg

DRUGS (25)
  1. SACITUZUMAB GOVITECAN [Suspect]
     Active Substance: SACITUZUMAB GOVITECAN
     Indication: Transitional cell carcinoma
     Dosage: 5 MG/KG, Q1WK
     Route: 042
     Dates: start: 20220309, end: 20220518
  2. LITICAN [ALIZAPRIDE HYDROCHLORIDE] [Concomitant]
     Indication: Nausea
     Dosage: PRN
     Dates: start: 202110
  3. MOTILIUM [Concomitant]
     Active Substance: DOMPERIDONE
     Indication: Nausea
     Dosage: PRN
     Dates: start: 20220306
  4. MAGNESIUM [Concomitant]
     Active Substance: MAGNESIUM
     Indication: Hypomagnesaemia
     Dosage: UNK
     Dates: start: 20220406
  5. PRIMPERAN [Concomitant]
     Active Substance: METOCLOPRAMIDE HYDROCHLORIDE
     Indication: Nausea
     Dosage: UNK
     Dates: start: 20220401
  6. INNOHEP [Concomitant]
     Active Substance: TINZAPARIN SODIUM
     Indication: Embolism
     Dosage: UNK
     Dates: start: 20220415
  7. XANAX [Concomitant]
     Active Substance: ALPRAZOLAM
     Indication: Insomnia
     Dosage: UNK
     Dates: start: 20220511
  8. STEOVIT FORTE [Concomitant]
     Dosage: UNK
     Dates: start: 20220512
  9. OMEPRAZOLE [Concomitant]
     Active Substance: OMEPRAZOLE
     Dosage: UNK
     Dates: start: 202109
  10. TAMSULOSIN [Concomitant]
     Active Substance: TAMSULOSIN
     Indication: Bladder spasm
  11. OXYCONTIN [Concomitant]
     Active Substance: OXYCODONE HYDROCHLORIDE
     Indication: Bladder spasm
     Dosage: UNK
     Dates: start: 20210901
  12. PREDNISOLONE [Concomitant]
     Active Substance: PREDNISOLONE
     Dosage: UNK
     Dates: start: 20220505
  13. D-VITAL CALCIUM [Concomitant]
     Indication: Osteoporosis
     Dosage: UNK
     Dates: start: 202112
  14. PIPERACILLIN [Concomitant]
     Active Substance: PIPERACILLIN
     Indication: Enterococcal infection
     Dosage: UNK
     Dates: start: 2022
  15. PIPERACILLIN [Concomitant]
     Active Substance: PIPERACILLIN
     Indication: Escherichia infection
  16. AUGMENTIN [Concomitant]
     Active Substance: AMOXICILLIN\CLAVULANATE POTASSIUM
     Indication: Escherichia infection
     Dosage: UNK
     Dates: start: 2022
  17. AUGMENTIN [Concomitant]
     Active Substance: AMOXICILLIN\CLAVULANATE POTASSIUM
     Indication: Enterococcal infection
  18. VANCOMYCIN [Concomitant]
     Active Substance: VANCOMYCIN
     Dosage: UNK
     Dates: start: 2022
  19. AMOXICILLIN\CLAVULANATE POTASSIUM [Concomitant]
     Active Substance: AMOXICILLIN\CLAVULANATE POTASSIUM
  20. CALCIUM CARBONATE [Concomitant]
     Active Substance: CALCIUM CARBONATE
  21. NADROPARIN CALCIUM [Concomitant]
     Active Substance: NADROPARIN CALCIUM
  22. SODIUM BICARBONATE [Concomitant]
     Active Substance: SODIUM BICARBONATE
  23. PANTOMED [DEXPANTHENOL] [Concomitant]
  24. ACETAMINOPHEN [Concomitant]
     Active Substance: ACETAMINOPHEN
  25. TRAMADOL HYDROCHLORIDE [Concomitant]
     Active Substance: TRAMADOL HYDROCHLORIDE
     Dosage: UNK
     Dates: start: 20220610

REACTIONS (1)
  - Electrolyte imbalance [Not Recovered/Not Resolved]

NARRATIVE: CASE EVENT DATE: 20220530
